FAERS Safety Report 4858334-2 (Version None)
Quarter: 2005Q4

REPORT INFORMATION
  Report Type: 
  Country: None (occurrence: None)
  Receive Date: 20051219
  Receipt Date: 20050727
  Transmission Date: 20060501
  Serious: No
  Sender: FDA-Public Use
  Company Number: US-GLAXOSMITHKLINE-A0567896A

PATIENT
  Age: 50 Year
  Sex: Female

DRUGS (4)
  1. NICODERM CQ [Suspect]
     Dates: start: 20050725
  2. ATIVAN [Concomitant]
  3. LEVOTHYROXINE SODIUM [Concomitant]
     Indication: THYROID DISORDER
  4. EFFEXOR [Concomitant]

REACTIONS (5)
  - DIZZINESS [None]
  - FEELING COLD [None]
  - HOT FLUSH [None]
  - INSOMNIA [None]
  - NAUSEA [None]
